FAERS Safety Report 4443533-4 (Version None)
Quarter: 2004Q3

REPORT INFORMATION
  Report Type: 
  Country: None (occurrence: None)
  Receive Date: 20040901
  Receipt Date: 20040816
  Transmission Date: 20050211
  Serious: Yes (Hospitalization)
  Sender: FDA-Public Use
  Company Number: 2004-00366

PATIENT
  Age: 78 Year
  Sex: Female

DRUGS (5)
  1. VELCADE [Suspect]
     Indication: MULTIPLE MYELOMA
     Dosage: INTRAVENOUS
     Route: 042
  2. MELPHALAN (MELPHALAN) [Concomitant]
  3. PREDNISONE [Concomitant]
  4. PROCRIT [Concomitant]
  5. PLENDIL [Concomitant]

REACTIONS (5)
  - ANGIOPATHY [None]
  - CHEST PAIN [None]
  - EJECTION FRACTION DECREASED [None]
  - OXYGEN SATURATION DECREASED [None]
  - PULMONARY HYPERTENSION [None]
